FAERS Safety Report 6512154-1 (Version None)
Quarter: 2009Q4

REPORT INFORMATION
  Report Type: 
  Country: None (occurrence: None)
  Receive Date: 20091222
  Receipt Date: 20090713
  Transmission Date: 20100525
  Serious: No
  Sender: FDA-Public Use
  Company Number: US-ASTRAZENECA-2009UW15019

PATIENT
  Age: 81 Year
  Sex: Female
  Weight: 49.9 kg

DRUGS (7)
  1. CRESTOR [Suspect]
     Route: 048
     Dates: start: 20090501
  2. NEXIUM [Concomitant]
     Indication: DYSPEPSIA
     Route: 048
  3. ZEBETA [Concomitant]
     Indication: HYPERTENSION
  4. DIGOXIN [Concomitant]
     Indication: CARDIAC DISORDER
  5. LASIX [Concomitant]
  6. POTASSIUM [Concomitant]
  7. PAXIL [Concomitant]
     Indication: DEPRESSION

REACTIONS (5)
  - ABDOMINAL DISCOMFORT [None]
  - ABDOMINAL PAIN [None]
  - HEADACHE [None]
  - MALAISE [None]
  - PAIN IN EXTREMITY [None]
